FAERS Safety Report 6643292-0 (Version None)
Quarter: 2010Q1

REPORT INFORMATION
  Report Type: 
  Country: None (occurrence: None)
  Receive Date: 20100319
  Receipt Date: 20100311
  Transmission Date: 20100710
  Serious: Yes (Death, Other)
  Sender: FDA-Public Use
  Company Number: GXKR2010DE02966

PATIENT
  Sex: Female

DRUGS (12)
  1. METHYLPREDNISOLONE ACETATE [Suspect]
     Indication: IMMUNOSUPPRESSION
     Dosage: 500 MG, UNK
     Route: 042
     Dates: start: 19950301
  2. METHYLPREDNISOLONE ACETATE [Suspect]
     Indication: VASCULITIS
  3. PREDNISOLONE [Suspect]
     Indication: IMMUNOSUPPRESSION
     Dosage: 250 MG/DAY
     Route: 065
     Dates: start: 19941101
  4. PREDNISOLONE [Suspect]
     Indication: VASCULITIS
     Dosage: 50 MG/DAY
     Route: 065
     Dates: start: 19950101
  5. PREDNISOLONE [Suspect]
     Dosage: 30 MG
     Route: 048
     Dates: start: 19950301
  6. PREDNISOLONE [Suspect]
     Dosage: 5 MG/DAY
     Route: 065
     Dates: start: 19950501
  7. CYCLOSPORINE [Suspect]
     Indication: IMMUNOSUPPRESSION
     Dosage: 100 MG/DAY
     Route: 065
     Dates: start: 19950301, end: 19950501
  8. CYCLOSPORINE [Suspect]
     Indication: VASCULITIS
  9. GANCICLOVIR SODIUM [Concomitant]
     Indication: ANTIRETROVIRAL THERAPY
     Dosage: UNK
     Dates: start: 19941101, end: 19950201
  10. FOSCARNET [Concomitant]
     Indication: ANTIRETROVIRAL THERAPY
     Dosage: UNK
     Route: 065
     Dates: start: 19941101, end: 19950201
  11. IMMUNE GLOBULIN (HUMAN) [Concomitant]
     Dosage: 25 G, UNK
     Route: 065
  12. PLASMAPHERESIS [Concomitant]

REACTIONS (5)
  - DISORIENTATION [None]
  - FRONTOTEMPORAL DEMENTIA [None]
  - HERPES ZOSTER [None]
  - JC VIRUS INFECTION [None]
  - PROGRESSIVE MULTIFOCAL LEUKOENCEPHALOPATHY [None]
